FAERS Safety Report 4314147-1 (Version None)
Quarter: 2004Q1

REPORT INFORMATION
  Report Type: 
  Country: None (occurrence: None)
  Receive Date: 20040308
  Receipt Date: 20040308
  Transmission Date: 20041129
  Serious: Yes (Other)
  Sender: FDA-Public Use
  Company Number: None

PATIENT
  Age: 17 Year
  Sex: Male

DRUGS (2)
  1. GEODON [Suspect]
     Indication: SCHIZOAFFECTIVE DISORDER
     Dosage: 40 MG PO BID
     Route: 048
     Dates: start: 20040305, end: 20040306
  2. ZOLOFT [Concomitant]

REACTIONS (4)
  - BALANCE DISORDER [None]
  - DYSTONIA [None]
  - OCULOGYRATION [None]
  - SWOLLEN TONGUE [None]
